FAERS Safety Report 15048345 (Version 3)
Quarter: 2018Q3

REPORT INFORMATION
  Report Type: Report from Study
  Country: HU (occurrence: HU)
  Receive Date: 20180622
  Receipt Date: 20180903
  Transmission Date: 20181010
  Serious: Yes (Death, Hospitalization)
  Sender: FDA-Public Use
  Company Number: HU-ROCHE-2141734

PATIENT
  Age: 57 Year
  Sex: Male
  Weight: 94 kg

DRUGS (17)
  1. XETER [Concomitant]
     Active Substance: ROSUVASTATIN CALCIUM
     Indication: PROPHYLAXIS
     Route: 065
     Dates: start: 200903
  2. ASPIRIN PROTECT [Concomitant]
     Active Substance: ASPIRIN
     Indication: PROPHYLAXIS
     Route: 065
     Dates: start: 200903
  3. VITAMIN C [Concomitant]
     Active Substance: ASCORBIC ACID
     Indication: PROPHYLAXIS
     Route: 065
     Dates: start: 200903
  4. RED BLOOD CELLS [Concomitant]
     Active Substance: HUMAN RED BLOOD CELL
     Indication: ANAEMIA
     Route: 065
     Dates: start: 20180518, end: 20180518
  5. SELEN (SODIUM SELENITE) [Concomitant]
     Indication: PROPHYLAXIS
     Route: 065
     Dates: start: 2016
  6. SKUDEXA [Concomitant]
     Active Substance: DEXKETOPROFEN\TRAMADOL
     Indication: CANCER PAIN
     Route: 065
     Dates: start: 20180314
  7. INDOMETACINUM [Concomitant]
     Active Substance: INDOMETHACIN
     Indication: CANCER PAIN
     Route: 065
     Dates: start: 20180427
  8. PANTOPRAZOL [Concomitant]
     Active Substance: PANTOPRAZOLE SODIUM
     Indication: PROPHYLAXIS
     Route: 065
     Dates: start: 2010
  9. VOLTAREN [Concomitant]
     Active Substance: DICLOFENAC SODIUM
     Indication: CANCER PAIN
     Route: 065
     Dates: start: 20180427
  10. STILNOX [Concomitant]
     Active Substance: ZOLPIDEM TARTRATE
     Indication: INSOMNIA
     Route: 065
     Dates: start: 20160303
  11. ATEZOLIZUMAB. [Suspect]
     Active Substance: ATEZOLIZUMAB
     Indication: SQUAMOUS CELL CARCINOMA
     Dosage: ON 03/MAY/2018: MOST RECENT DOSE OF ATEZOLIZUMAB (840 MG) PRIOR TO EVENT ONSET.
     Route: 042
     Dates: start: 20180419
  12. COBIMETINIB. [Suspect]
     Active Substance: COBIMETINIB
     Indication: SQUAMOUS CELL CARCINOMA
     Dosage: DOSE: COBIMETINIB 60 MG (3 TABLETS OF 20 MG EACH) (AS PER  PROTOCOL).?ON 09/MAY/2018: MOST RECENT DO
     Route: 048
     Dates: start: 20180419
  13. VITAMIN D3 FORTE [Concomitant]
     Indication: PROPHYLAXIS
     Route: 065
     Dates: start: 201601
  14. SOLU?MEDROL [Concomitant]
     Active Substance: METHYLPREDNISOLONE SODIUM SUCCINATE
     Indication: PERICARDITIS
     Route: 065
     Dates: start: 20180517
  15. ESCITALOPRAM [Concomitant]
     Active Substance: ESCITALOPRAM OXALATE
     Indication: PROPHYLAXIS
     Route: 065
     Dates: start: 201603
  16. CARVOL [Concomitant]
     Indication: PROPHYLAXIS
     Route: 065
     Dates: start: 201503
  17. MAGNESIUM CITRAT [Concomitant]
     Indication: PROPHYLAXIS
     Route: 065
     Dates: start: 201711

REACTIONS (1)
  - Peritonitis [Fatal]

NARRATIVE: CASE EVENT DATE: 20180617
